FAERS Safety Report 9759687 (Version 1)
Quarter: 2013Q4

REPORT INFORMATION
  Report Type: Spontaneous
  Country: US (occurrence: US)
  Receive Date: 20131216
  Receipt Date: 20131216
  Transmission Date: 20140711
  Serious: No
  Sender: FDA-Public Use
  Company Number: US-GILEAD-2010-0028615

PATIENT
  Sex: Female
  Weight: 71.67 kg

DRUGS (36)
  1. LETAIRIS [Suspect]
     Indication: PULMONARY ARTERIAL HYPERTENSION
     Route: 048
     Dates: start: 20080923, end: 201003
  2. BUMEX [Concomitant]
  3. FUROSEMIDE [Concomitant]
  4. LEVOTHYROXINE [Concomitant]
  5. PANTOPRAZOLE [Concomitant]
  6. ZOLOFT [Concomitant]
  7. FOLIC ACID [Concomitant]
  8. ENALAPRIL-HCTZ [Concomitant]
  9. CALCIUM [Concomitant]
  10. INSULIN [Concomitant]
  11. IRON-F [Concomitant]
  12. LANTUS SOLOSTAR [Concomitant]
  13. BISACODYL [Concomitant]
  14. MIRALAX [Concomitant]
  15. PROCRIT [Concomitant]
  16. FOSAMAX [Concomitant]
  17. METOPROLOL [Concomitant]
  18. ASPIRIN [Concomitant]
  19. LEVAQUIN [Concomitant]
  20. ALBUTEROL [Concomitant]
  21. POTASSIUM CHLORIDE [Concomitant]
  22. METOPROLOL [Concomitant]
  23. OCEAN [Concomitant]
  24. FEXOFENADINE HCL [Concomitant]
  25. SIMVASTATIN [Concomitant]
  26. NABUMETONE [Concomitant]
  27. SERTRALINE [Concomitant]
  28. ICAR-C [Concomitant]
  29. LASIX [Concomitant]
  30. NITRO-PATCH [Concomitant]
  31. AMBIEN [Concomitant]
  32. OXYGEN [Concomitant]
  33. NITROGLYCERIN [Concomitant]
  34. LEVOXYL [Concomitant]
  35. MUCINEX D [Concomitant]
  36. SPIRIVA [Concomitant]

REACTIONS (1)
  - Haemorrhage [Unknown]
